FAERS Safety Report 5384854-0 (Version None)
Quarter: 2007Q4

REPORT INFORMATION
  Report Type: 
  Country: None (occurrence: None)
  Receive Date: 20070711
  Receipt Date: 20070702
  Transmission Date: 20080405
  Serious: Yes (Other)
  Sender: FDA-Public Use
  Company Number: GB-ALLERGAN-0707299US

PATIENT
  Sex: Female

DRUGS (11)
  1. OCUFEN [Suspect]
     Indication: PREOPERATIVE CARE
     Route: 047
     Dates: start: 20070501
  2. OCUFEN [Suspect]
  3. OCUFEN [Suspect]
  4. CHLORAMPHENICOL [Suspect]
     Indication: PREOPERATIVE CARE
  5. CYCLOPENTOLATE HCL [Suspect]
     Indication: PREOPERATIVE CARE
  6. PHENYLEPHRINE [Suspect]
     Indication: PREOPERATIVE CARE
  7. LIDOCAINE [Suspect]
     Indication: PREOPERATIVE CARE
  8. POVIDONE IODINE [Suspect]
     Indication: PREOPERATIVE CARE
  9. BALANCED SALT SOLUTION [Suspect]
     Indication: PREOPERATIVE CARE
  10. HEALON [Suspect]
     Indication: PREOPERATIVE CARE
  11. BETAMETHASONE/NEOMYCIN [Suspect]
     Indication: POSTOPERATIVE CARE

REACTIONS (1)
  - TOXIC ANTERIOR SEGMENT SYNDROME [None]
